FAERS Safety Report 20357343 (Version 1)
Quarter: 2022Q1

REPORT INFORMATION
  Report Type: Spontaneous
  Country: US (occurrence: US)
  Receive Date: 20220120
  Receipt Date: 20220120
  Transmission Date: 20220423
  Serious: No
  Sender: FDA-Public Use
  Company Number: US-MYLANLABS-2022M1002846

PATIENT
  Age: 64 Year
  Sex: Female
  Weight: 58.97 kg

DRUGS (11)
  1. FENTANYL TRANSDERMAL SYSTEM [Suspect]
     Active Substance: FENTANYL
     Indication: Pain
     Dosage: 50 MICROGRAM, QH, FOR 72 HOURS
     Route: 062
  2. SYNTHROID [Concomitant]
     Active Substance: LEVOTHYROXINE SODIUM
     Indication: Thyroid disorder
     Dosage: UNK UNK, QD
     Route: 048
  3. IRON [Concomitant]
     Active Substance: IRON
     Dosage: UNK UNK, QD
     Route: 048
  4. CRANBERRY [Concomitant]
     Active Substance: CRANBERRY
     Dosage: UNK UNK, QD
     Route: 048
  5. VITAMIN E [Concomitant]
     Active Substance: .ALPHA.-TOCOPHEROL
     Dosage: UNK UNK, QD
     Route: 048
  6. VITAMIN C [Concomitant]
     Active Substance: ASCORBIC ACID
     Dosage: UNK UNK, QD
     Route: 048
  7. VITAMIN B12 [Concomitant]
     Active Substance: CYANOCOBALAMIN
     Dosage: UNK UNK, QD
     Route: 048
  8. VITAMIN D3 [Concomitant]
     Active Substance: CHOLECALCIFEROL
     Dosage: UNK UNK, QD
     Route: 048
  9. CANNABIDIOL [Interacting]
     Active Substance: CANNABIDIOL
     Indication: Breakthrough pain
     Dosage: 200 MILLIGRAM, QD
  10. CANNABIS SATIVA SUBSP. INDICA TOP [Interacting]
     Active Substance: CANNABIS SATIVA SUBSP. INDICA TOP
     Indication: Breakthrough pain
     Dosage: UNK
  11. LIDODERM [Interacting]
     Active Substance: LIDOCAINE
     Dosage: 5 PERCENT, PRN

REACTIONS (1)
  - Therapeutic product effect incomplete [Unknown]

NARRATIVE: CASE EVENT DATE: 20210101
